FAERS Safety Report 8159708-7 (Version None)
Quarter: 2012Q1

REPORT INFORMATION
  Report Type: 
  Country: None (occurrence: None)
  Receive Date: 20120223
  Receipt Date: 20120209
  Transmission Date: 20120608
  Serious: Yes (Other)
  Sender: FDA-Public Use
  Company Number: US-WATSON-2012-02652

PATIENT
  Sex: Male
  Weight: 50.794 kg

DRUGS (2)
  1. FENTANYL-25 [Suspect]
     Indication: NECK PAIN
     Dosage: APPLIED ONE PATCH FOR 2 HOURS
     Route: 062
     Dates: start: 20120208, end: 20120208
  2. TRAMADOL HCL [Concomitant]
     Indication: NECK PAIN
     Dosage: 50 MG, TID
     Route: 048

REACTIONS (8)
  - ERYTHEMA [None]
  - DRUG INEFFECTIVE [None]
  - DYSPHAGIA [None]
  - CHOKING [None]
  - DYSPNOEA [None]
  - OEDEMA PERIPHERAL [None]
  - OESOPHAGEAL SPASM [None]
  - HYPERHIDROSIS [None]
